FAERS Safety Report 7439796-3 (Version None)
Quarter: 2011Q2

REPORT INFORMATION
  Report Type: 
  Country: None (occurrence: None)
  Receive Date: 20110427
  Receipt Date: 20110419
  Transmission Date: 20111010
  Serious: Yes (Death, Hospitalization)
  Sender: FDA-Public Use
  Company Number: HU-SANOFI-AVENTIS-200813684GDDC

PATIENT
  Age: 75 Year
  Sex: Male
  Weight: 82.5 kg

DRUGS (10)
  1. DOCETAXEL [Suspect]
     Dosage: DOSE UNIT: 75 MG/M**2
     Route: 042
     Dates: start: 20080402, end: 20080402
  2. METOPROLOL [Concomitant]
     Dosage: DOSE AS USED: UNK
  3. HYDROCHLOROTHIAZIDE [Concomitant]
  4. PREDNISOLONE [Suspect]
     Route: 048
     Dates: start: 20080312, end: 20080514
  5. AMILORIDE HYDROCHLORIDE [Concomitant]
  6. AFLIBERCEPT [Suspect]
     Dosage: DOSE UNIT: 6 MG/KG
     Route: 042
     Dates: start: 20080402, end: 20080402
  7. METOPROLOL [Concomitant]
     Dosage: DOSE AS USED: 2 X1
  8. ALLOPURINOL [Concomitant]
     Dates: start: 19800101
  9. FAMOTIDINE [Concomitant]
  10. METHYLPREDNISOLONE [Concomitant]

REACTIONS (2)
  - ANGINA PECTORIS [None]
  - DEATH [None]
